FAERS Safety Report 12605815 (Version 1)
Quarter: 2016Q3

REPORT INFORMATION
  Report Type: Spontaneous
  Country: US (occurrence: None)
  Receive Date: 20160728
  Receipt Date: 20160728
  Transmission Date: 20161109
  Serious: Yes (Disabling)
  Sender: FDA-Public Use
  Company Number: None

PATIENT
  Age: 33 Year
  Sex: Female
  Weight: 58.97 kg

DRUGS (1)
  1. DIPHENHYDRAMINE. [Suspect]
     Active Substance: DIPHENHYDRAMINE
     Indication: INSOMNIA
     Route: 048
     Dates: start: 20160723, end: 20160723

REACTIONS (6)
  - Hypoaesthesia [None]
  - Discomfort [None]
  - Toothache [None]
  - Pruritus [None]
  - Lip swelling [None]
  - Gingival pain [None]

NARRATIVE: CASE EVENT DATE: 20160724
